FAERS Safety Report 15283047 (Version 1)
Quarter: 2018Q3

REPORT INFORMATION
  Report Type: Spontaneous
  Country: TN (occurrence: TN)
  Receive Date: 20180816
  Receipt Date: 20180816
  Transmission Date: 20181010
  Serious: Yes (Other)
  Sender: FDA-Public Use
  Company Number: TN-LUPIN PHARMACEUTICALS INC.-2017-05252

PATIENT
  Age: 81 Year
  Sex: Male

DRUGS (4)
  1. LEVOFLOXACIN TABLETS [Suspect]
     Active Substance: LEVOFLOXACIN
     Indication: BRONCHITIS
     Dosage: 500 MG, QD
     Route: 065
  2. FORMOTEROL [Concomitant]
     Active Substance: FORMOTEROL
     Indication: BRONCHITIS
     Dosage: 1 DF, BID
     Route: 065
  3. DEXTROMETHORPHANE [Concomitant]
     Active Substance: DEXTROMETHORPHAN
     Indication: BRONCHITIS
     Dosage: 30 MG, EVERY 8 HR.
     Route: 048
  4. BECLOMETHASONE                     /00212602/ [Concomitant]
     Active Substance: BECLOMETHASONE
     Indication: BRONCHITIS
     Dosage: 400 MCG, BID

REACTIONS (1)
  - Muscle rupture [Recovered/Resolved]
